FAERS Safety Report 25878255 (Version 2)
Quarter: 2025Q4

REPORT INFORMATION
  Report Type: Spontaneous
  Country: EU (occurrence: EU)
  Receive Date: 20251003
  Receipt Date: 20251120
  Transmission Date: 20260117
  Serious: Yes (Death, Life-Threatening, Hospitalization, Other)
  Sender: RANBAXY
  Company Number: EU-SUN PHARMACEUTICAL INDUSTRIES LTD-2025R1-519901

PATIENT
  Age: 59 Year
  Sex: Female

DRUGS (7)
  1. MIRTAZAPINE [Suspect]
     Active Substance: MIRTAZAPINE
     Indication: Depression
     Dosage: 1350 MILLIGRAM
     Route: 048
     Dates: start: 20230411, end: 20230411
  2. MIRTAZAPINE [Suspect]
     Active Substance: MIRTAZAPINE
     Indication: Suicide attempt
  3. VENLAFAXINE [Suspect]
     Active Substance: VENLAFAXINE HYDROCHLORIDE
     Indication: Depression
     Dosage: UNK (3090 NG/ML)
     Route: 048
  4. OXAZEPAM [Suspect]
     Active Substance: OXAZEPAM
     Indication: Anxiety disorder
     Dosage: 11000 MILLIGRAM
     Route: 048
     Dates: start: 20230411, end: 20230411
  5. OXAZEPAM [Suspect]
     Active Substance: OXAZEPAM
     Indication: Suicide attempt
  6. ACETAMINOPHEN [Suspect]
     Active Substance: ACETAMINOPHEN
     Indication: Suicide attempt
     Dosage: 38000 MILLIGRAM
     Route: 048
     Dates: start: 20230411, end: 20230411
  7. ZOPICLONE [Suspect]
     Active Substance: ZOPICLONE
     Indication: Suicide attempt
     Dosage: 105 MILLIGRAM
     Route: 048
     Dates: start: 20230411, end: 20230411

REACTIONS (12)
  - Toxicity to various agents [Unknown]
  - Bezoar [Fatal]
  - Intentional overdose [Fatal]
  - Completed suicide [Fatal]
  - Coma [Fatal]
  - Hypothermia [Fatal]
  - Miosis [Fatal]
  - Electrocardiogram QT prolonged [Fatal]
  - Shock [Fatal]
  - Acute respiratory distress syndrome [Fatal]
  - Multiple organ dysfunction syndrome [Fatal]
  - Serotonin syndrome [Fatal]

NARRATIVE: CASE EVENT DATE: 20230411
